FAERS Safety Report 20468600 (Version 1)
Quarter: 2022Q1

REPORT INFORMATION
  Report Type: Spontaneous
  Country: US (occurrence: None)
  Receive Date: 20220212
  Receipt Date: 20220212
  Transmission Date: 20220423
  Serious: Yes (Disabling)
  Sender: FDA-Public Use
  Company Number: None

PATIENT
  Age: 68 Year
  Sex: Female
  Weight: 74.25 kg

DRUGS (22)
  1. ALENDRONATE SODIUM [Suspect]
     Active Substance: ALENDRONATE SODIUM
     Indication: Osteopenia
     Dosage: OTHER QUANTITY : 1 TABLET(S);?OTHER FREQUENCY : WEEKLY;?
     Route: 048
     Dates: start: 20220201, end: 20220209
  2. ZANTAC [Concomitant]
     Active Substance: RANITIDINE HYDROCHLORIDE
  3. PREVACID [Concomitant]
     Active Substance: LANSOPRAZOLE
  4. DOXEPIN [Concomitant]
     Active Substance: DOXEPIN
  5. VALACYCLOVIR [Concomitant]
     Active Substance: VALACYCLOVIR HYDROCHLORIDE
  6. VALIUM [Concomitant]
     Active Substance: DIAZEPAM
  7. GABAPENTIN [Concomitant]
     Active Substance: GABAPENTIN
  8. CYMBALTA [Concomitant]
     Active Substance: DULOXETINE HYDROCHLORIDE
  9. PREDNISONE [Concomitant]
     Active Substance: PREDNISONE
  10. ALENDRONATE [Concomitant]
     Active Substance: ALENDRONATE SODIUM
  11. VITAMIN D3 [Concomitant]
     Active Substance: CHOLECALCIFEROL
  12. VITAMIN C [Concomitant]
     Active Substance: ASCORBIC ACID
  13. EVENING PRIMOSE OIL WITH VITAMIN B6 [Concomitant]
  14. ABSORBABLE CALCIUM W/MAGNESIUM + VITAMIN D3 [Concomitant]
  15. VITAMIN B COMPLEX [Concomitant]
     Active Substance: CYANOCOBALAMIN\DEXPANTHENOL\NIACINAMIDE\PYRIDOXINE HYDROCHLORIDE\RIBOFLAVIN 5^-PHOSPHATE SODIUM\THIA
  16. PREMIUM LUBRI-JOINT [Concomitant]
  17. ALBION CHELATED MAGNESIUM [Concomitant]
  18. PROBIOTICS NOS [Concomitant]
     Active Substance: PROBIOTICS NOS
  19. LUTEIN [Concomitant]
     Active Substance: LUTEIN
  20. PHYTOSTEROL COMPLEX W/BETA SITOSTEROL [Concomitant]
  21. REUMA-ART X-STRENGTH [Concomitant]
  22. MIRALAX [Concomitant]
     Active Substance: POLYETHYLENE GLYCOL 3350

REACTIONS (9)
  - Peripheral swelling [None]
  - Headache [None]
  - Nausea [None]
  - Asthenia [None]
  - Fatigue [None]
  - Insomnia [None]
  - Arthralgia [None]
  - Myalgia [None]
  - Hypokinesia [None]

NARRATIVE: CASE EVENT DATE: 20220209
